FAERS Safety Report 23425036 (Version 3)
Quarter: 2024Q1

REPORT INFORMATION
  Report Type: Spontaneous
  Country: US (occurrence: US)
  Receive Date: 20240121
  Receipt Date: 20240318
  Transmission Date: 20240410
  Serious: Yes (Other)
  Sender: FDA-Public Use
  Company Number: US-BRISTOL-MYERS SQUIBB COMPANY-2024-007470

PATIENT
  Age: 64 Year
  Sex: Male

DRUGS (2)
  1. LENALIDOMIDE [Suspect]
     Active Substance: LENALIDOMIDE
     Indication: Urinary retention
     Route: 048
     Dates: start: 20231204
  2. INSULIN NOS [Concomitant]
     Active Substance: INSULIN NOS
     Indication: Product used for unknown indication

REACTIONS (6)
  - Influenza [Recovering/Resolving]
  - Product dose omission issue [Recovered/Resolved]
  - Off label use [Unknown]
  - Contusion [Recovered/Resolved]
  - Product availability issue [Unknown]
  - Therapy interrupted [Unknown]
